FAERS Safety Report 24433273 (Version 1)
Quarter: 2024Q4

REPORT INFORMATION
  Report Type: Spontaneous
  Country: FR (occurrence: FR)
  Receive Date: 20241014
  Receipt Date: 20241014
  Transmission Date: 20250115
  Serious: Yes (Hospitalization, Congenital Anomaly, Other)
  Sender: INSUD PHARMA
  Company Number: FR-EMA-DD-20210118-prabhakar_d-184658

PATIENT
  Sex: Female
  Weight: 3.36 kg

DRUGS (5)
  1. ETHINYL ESTRADIOL\LEVONORGESTREL [Suspect]
     Active Substance: ETHINYL ESTRADIOL\LEVONORGESTREL
     Indication: Foetal exposure during pregnancy
     Dosage: MATERNAL DOSE: UNK
     Route: 064
  2. ETHINYL ESTRADIOL\LEVONORGESTREL [Suspect]
     Active Substance: ETHINYL ESTRADIOL\LEVONORGESTREL
     Indication: Contraception
  3. VALPROATE SODIUM [Suspect]
     Active Substance: VALPROATE SODIUM
     Indication: Epilepsy
     Dosage: 1500 MG, QD (USED FOR MOTHER^S EPILEPSY)
     Route: 064
     Dates: start: 20090407, end: 20100104
  4. VALPROATE SODIUM [Suspect]
     Active Substance: VALPROATE SODIUM
     Indication: Foetal exposure during pregnancy
  5. FOLIC ACID [Concomitant]
     Active Substance: FOLIC ACID
     Indication: Foetal exposure during pregnancy
     Dosage: MATERNAL DOSE: UNK
     Route: 064

REACTIONS (31)
  - Abnormal sleep-related event [Unknown]
  - Affect lability [Unknown]
  - Childhood asthma [Unknown]
  - Intentional self-injury [Unknown]
  - Neonatal respiratory acidosis [Unknown]
  - Dysmorphism [Unknown]
  - Dyslexia [Unknown]
  - Educational problem [Unknown]
  - Movement disorder [Unknown]
  - Electroencephalogram abnormal [Unknown]
  - Hypertonia [Unknown]
  - Nasopharyngitis [Unknown]
  - Frustration tolerance decreased [Unknown]
  - Cyanosis [Unknown]
  - Educational problem [Unknown]
  - Frustration tolerance decreased [Unknown]
  - Anger [Unknown]
  - Dysmorphism [Unknown]
  - Behaviour disorder [Unknown]
  - Gastrooesophageal reflux disease [Unknown]
  - Knee deformity [Unknown]
  - Language disorder [Unknown]
  - Upper respiratory tract infection [Unknown]
  - Sandifer^s syndrome [Unknown]
  - Clonus [Unknown]
  - Learning disorder [Unknown]
  - Malaise [Unknown]
  - Foetal exposure during pregnancy [Recovered/Resolved]
  - Aggression [Unknown]
  - Disturbance in attention [Unknown]
  - Prognathism [Unknown]

NARRATIVE: CASE EVENT DATE: 20100104
